FAERS Safety Report 8915625 (Version 4)
Quarter: 2012Q4

REPORT INFORMATION
  Report Type: 
  Country: GR (occurrence: GR)
  Receive Date: 20121119
  Receipt Date: 20121217
  Transmission Date: 20130627
  Serious: Yes (Other)
  Sender: FDA-Public Use
  Company Number: GR-VERTEX PHARMACEUTICAL INC.-2012-024831

PATIENT

DRUGS (5)
  1. INCIVO [Suspect]
     Indication: HEPATITIS C
     Dosage: 750 mg, tid
     Route: 048
  2. INCIVO [Suspect]
     Dosage: Dosage Form: Tablet
     Route: 048
  3. INCIVO [Suspect]
     Dosage: Dosage Form: Tablet
     Route: 048
  4. RIBAVIRIN [Concomitant]
     Indication: HEPATITIS C
     Route: 065
  5. PEG INTERFERON [Concomitant]
     Indication: HEPATITIS C
     Route: 065

REACTIONS (4)
  - Pyrexia [Unknown]
  - Rash generalised [Recovered/Resolved]
  - Blister [Not Recovered/Not Resolved]
  - Oedema peripheral [Unknown]
